FAERS Safety Report 5202887-1 (Version None)
Quarter: 2006Q4

REPORT INFORMATION
  Report Type: 
  Country: None (occurrence: None)
  Receive Date: 20061016
  Receipt Date: 20060803
  Transmission Date: 20070319
  Serious: No
  Sender: FDA-Public Use
  Company Number: 2006SP002910

PATIENT
  Age: 30 Year
  Sex: Female
  Weight: 70.3075 kg

DRUGS (3)
  1. LUNESTA [Suspect]
     Indication: SLEEP DISORDER
     Dosage: 3MG, HS; ORAL
     Route: 048
     Dates: start: 20060802, end: 20060802
  2. LORTAB [Concomitant]
  3. FLUOXETINE [Concomitant]

REACTIONS (1)
  - DYSGEUSIA [None]
